FAERS Safety Report 8963197 (Version 1)
Quarter: 2012Q4

REPORT INFORMATION
  Report Type: Report from Study
  Country: CA (occurrence: CA)
  Receive Date: 20121214
  Receipt Date: 20121214
  Transmission Date: 20130627
  Serious: Yes (Hospitalization)
  Sender: FDA-Public Use
  Company Number: CA-PFIZER INC-2012313384

PATIENT
  Age: 70 Year
  Sex: Female
  Weight: 92.4 kg

DRUGS (6)
  1. LIPITOR [Suspect]
     Indication: DRUG USE FOR UNKNOWN INDICATION
     Dosage: 80 mg, Daily
     Dates: start: 19980731
  2. NORVASC [Suspect]
     Indication: DRUG USE FOR UNKNOWN INDICATION
     Dosage: 5 mg, Daily
     Dates: start: 19980731
  3. ERLOTINIB [Suspect]
     Indication: NON-SMALL CELL LUNG CANCER
     Dosage: 150 mg, daily
     Route: 048
     Dates: start: 20090306, end: 20090323
  4. NADOLOL [Suspect]
     Indication: DRUG USE FOR UNKNOWN INDICATION
     Dosage: 40 mg, Daily
     Dates: start: 19980731
  5. HYZAAR [Suspect]
     Indication: DRUG USE FOR UNKNOWN INDICATION
     Dosage: 12.5 mg, Daily
     Dates: start: 19980731
  6. ASA [Suspect]
     Indication: DRUG USE FOR UNKNOWN INDICATION
     Dosage: 325 mg, Daily
     Dates: start: 19980731

REACTIONS (1)
  - Gastrointestinal haemorrhage [Recovered/Resolved]
